FAERS Safety Report 24360048 (Version 2)
Quarter: 2024Q4

REPORT INFORMATION
  Report Type: Report from Study
  Country: US (occurrence: US)
  Receive Date: 20240925
  Receipt Date: 20241017
  Transmission Date: 20250115
  Serious: Yes (Hospitalization)
  Sender: DECIPHERA PHARMACEUTICALS
  Company Number: US-DECIPHERA PHARMACEUTICALS LLC-2024US000811

PATIENT
  Age: 65 Year
  Sex: Female
  Weight: 60.9 kg

DRUGS (2)
  1. QINLOCK [Suspect]
     Active Substance: RIPRETINIB
     Indication: Neuroendocrine tumour
     Dosage: 50 MILLIGRAM, QD
     Route: 048
     Dates: start: 20240126, end: 2024
  2. QINLOCK [Suspect]
     Active Substance: RIPRETINIB
     Dosage: 50 MILLIGRAM, QD
     Route: 048
     Dates: start: 20240918

REACTIONS (2)
  - Liver abscess [Unknown]
  - Infection [Unknown]

NARRATIVE: CASE EVENT DATE: 20240101
